FAERS Safety Report 5339391-6 (Version None)
Quarter: 2007Q2

REPORT INFORMATION
  Report Type: 
  Country: None (occurrence: None)
  Receive Date: 20070322
  Receipt Date: 20061130
  Transmission Date: 20071010
  Serious: Yes (Other)
  Sender: FDA-Public Use
  Company Number: 200614222BCC

PATIENT
  Age: 48 Year
  Sex: Female
  Weight: 63.5036 kg

DRUGS (2)
  1. ALEVE [Suspect]
     Indication: DRUG USE FOR UNKNOWN INDICATION
     Dosage: 440 MG, ONCE, ORAL
     Route: 048
     Dates: start: 20061004
  2. SYNTHROID [Concomitant]

REACTIONS (8)
  - ANAPHYLACTIC REACTION [None]
  - DYSPNOEA [None]
  - HYPERSENSITIVITY [None]
  - LIP SWELLING [None]
  - PRURITUS [None]
  - SWELLING FACE [None]
  - THROAT TIGHTNESS [None]
  - URTICARIA [None]
